FAERS Safety Report 16843939 (Version 1)
Quarter: 2019Q3

REPORT INFORMATION
  Report Type: Spontaneous
  Country: US (occurrence: US)
  Receive Date: 20190802
  Receipt Date: 20190802
  Transmission Date: 20191005
  Serious: No
  Sender: FDA-Public Use
  Company Number: None

PATIENT
  Age: 63 Year
  Sex: Female

DRUGS (3)
  1. AMLODIPINE [Concomitant]
     Active Substance: AMLODIPINE BESYLATE
  2. GLATIRAMER 40MG PFS INJ (12/BOX) [Suspect]
     Active Substance: GLATIRAMER
     Route: 058
     Dates: start: 20190417
  3. AMARYL [Concomitant]
     Active Substance: GLIMEPIRIDE

REACTIONS (3)
  - Diarrhoea [None]
  - Asthenia [None]
  - Fatigue [None]

NARRATIVE: CASE EVENT DATE: 20190802
